FAERS Safety Report 4928296-8 (Version None)
Quarter: 2006Q1

REPORT INFORMATION
  Report Type: 
  Country: None (occurrence: None)
  Receive Date: 20060228
  Receipt Date: 20050829
  Transmission Date: 20060701
  Serious: Yes (Hospitalization, Disabling)
  Sender: FDA-Public Use
  Company Number: US-MERCK-0508USA04645

PATIENT
  Age: 71 Year
  Sex: Female
  Weight: 85 kg

DRUGS (6)
  1. VIOXX [Suspect]
     Route: 048
     Dates: start: 20011201
  2. PROCARDIA [Concomitant]
     Route: 048
  3. DYAZIDE [Concomitant]
     Route: 048
  4. POTASSIUM (UNSPECIFIED) [Concomitant]
     Route: 065
  5. VITAMIN E [Concomitant]
     Route: 065
  6. CLARITIN [Concomitant]
     Route: 065

REACTIONS (27)
  - ANOREXIA [None]
  - ATRIAL FIBRILLATION [None]
  - BRONCHIECTASIS [None]
  - CARDIAC FAILURE CONGESTIVE [None]
  - CHEST DISCOMFORT [None]
  - CHRONIC OBSTRUCTIVE PULMONARY DISEASE [None]
  - CORONARY ARTERY DISEASE [None]
  - COUGH [None]
  - DYSLIPIDAEMIA [None]
  - DYSPNOEA [None]
  - HYPOKALAEMIA [None]
  - HYPONATRAEMIA [None]
  - ISCHAEMIA [None]
  - JOINT SWELLING [None]
  - MITRAL VALVE INCOMPETENCE [None]
  - MUSCULOSKELETAL CHEST PAIN [None]
  - MUSCULOSKELETAL PAIN [None]
  - MYOCARDIAL INFARCTION [None]
  - NON-CARDIAC CHEST PAIN [None]
  - OSTEOARTHRITIS [None]
  - PERIPHERAL VASCULAR DISORDER [None]
  - PLEURAL EFFUSION [None]
  - PULMONARY HYPERTENSION [None]
  - TRICUSPID VALVE INCOMPETENCE [None]
  - UPPER RESPIRATORY TRACT INFECTION [None]
  - VENTRICULAR DYSFUNCTION [None]
  - VENTRICULAR EXTRASYSTOLES [None]
